FAERS Safety Report 7621189-7 (Version None)
Quarter: 2011Q3

REPORT INFORMATION
  Report Type: 
  Country: None (occurrence: None)
  Receive Date: 20110719
  Receipt Date: 20110628
  Transmission Date: 20111222
  Serious: Yes (Death)
  Sender: FDA-Public Use
  Company Number: US-PFIZER INC-2008154279

PATIENT
  Age: 52 Year
  Sex: Male

DRUGS (8)
  1. HYDROGEN PEROXIDE SOLUTION [Suspect]
     Dosage: UNK
     Route: 048
     Dates: end: 20070101
  2. OLANZAPINE [Suspect]
     Dosage: UNK
     Route: 048
     Dates: end: 20070101
  3. GLIPIZIDE [Suspect]
     Dosage: UNK
     Route: 048
     Dates: end: 20070101
  4. METFORMIN HCL [Suspect]
     Dosage: UNK
     Route: 048
     Dates: end: 20070101
  5. VERAPAMIL HCL [Suspect]
     Dosage: UNK
     Route: 048
     Dates: end: 20070101
  6. DYAZIDE [Suspect]
     Dosage: UNK
     Route: 048
     Dates: end: 20070101
  7. LITHIUM CARBONATE [Suspect]
     Dosage: UNK
     Route: 048
     Dates: end: 20070101
  8. MEVACOR [Suspect]
     Dosage: UNK
     Route: 048
     Dates: end: 20070101

REACTIONS (1)
  - COMPLETED SUICIDE [None]
